FAERS Safety Report 6903987-8 (Version None)
Quarter: 2010Q3

REPORT INFORMATION
  Report Type: 
  Country: None (occurrence: None)
  Receive Date: 20100804
  Receipt Date: 20100722
  Transmission Date: 20110219
  Serious: Yes (Hospitalization, Other)
  Sender: FDA-Public Use
  Company Number: US-RANBAXY-2010US-36251

PATIENT

DRUGS (5)
  1. CALAN [Suspect]
     Indication: ILL-DEFINED DISORDER
     Dosage: 240 MG,
     Route: 065
     Dates: start: 19920101, end: 19990101
  2. ZOLOFT [Suspect]
     Indication: ILL-DEFINED DISORDER
     Dosage: UNK MG, UNK
     Route: 048
     Dates: start: 19900101, end: 19990101
  3. ZOCOR [Suspect]
     Indication: ILL-DEFINED DISORDER
     Dosage: 20 MG, DAILY AT BED TIME
     Route: 065
     Dates: start: 19990301, end: 19991201
  4. VITAMIN E [Concomitant]
     Indication: PRODUCT USED FOR UNKNOWN INDICATION
     Dosage: UNK
     Route: 048
     Dates: start: 19940101
  5. LITHOBID [Concomitant]
     Indication: MANIA
     Dosage: UNK
     Route: 065
     Dates: start: 19850101

REACTIONS (2)
  - BREAST OPERATION [None]
  - GYNAECOMASTIA [None]
